FAERS Safety Report 14224530 (Version 2)
Quarter: 2017Q4

REPORT INFORMATION
  Report Type: Spontaneous
  Country: US (occurrence: US)
  Receive Date: 20171127
  Receipt Date: 20171128
  Transmission Date: 20180321
  Serious: No
  Sender: FDA-Public Use
  Company Number: US-AMGEN-USASP2017175806

PATIENT
  Age: 30 Year
  Sex: Male

DRUGS (4)
  1. METHYLPREDNISOLONE. [Concomitant]
     Active Substance: METHYLPREDNISOLONE
     Dosage: 4 MG, UNK
  2. BENZONATATE. [Concomitant]
     Active Substance: BENZONATATE
     Dosage: 100 MG, UNK
  3. ENBREL [Suspect]
     Active Substance: ETANERCEPT
     Indication: PSORIASIS
     Dosage: 50 MG, 2 TIMES/WK
     Route: 058
     Dates: start: 20171117
  4. IBUPROFEN. [Concomitant]
     Active Substance: IBUPROFEN
     Dosage: 200 MG, UNK

REACTIONS (4)
  - Headache [Unknown]
  - Abscess [Unknown]
  - Nasal inflammation [Unknown]
  - Tooth infection [Unknown]

NARRATIVE: CASE EVENT DATE: 2017
